FAERS Safety Report 15786429 (Version 1)
Quarter: 2019Q1

REPORT INFORMATION
  Report Type: Spontaneous
  Country: US (occurrence: US)
  Receive Date: 20190103
  Receipt Date: 20190103
  Transmission Date: 20190417
  Serious: No
  Sender: FDA-Public Use
  Company Number: US-BAYER-2018-241316

PATIENT
  Sex: Female
  Weight: 54 kg

DRUGS (1)
  1. LOTRIMIN ULTRA ANTIFUNGAL [Suspect]
     Active Substance: BUTENAFINE HYDROCHLORIDE
     Indication: SKIN DISORDER
     Dosage: UNK
     Route: 061

REACTIONS (3)
  - Product use in unapproved indication [Unknown]
  - Skin exfoliation [Unknown]
  - Underdose [Unknown]
